FAERS Safety Report 4864542-7 (Version None)
Quarter: 2005Q4

REPORT INFORMATION
  Report Type: 
  Country: None (occurrence: None)
  Receive Date: 20051222
  Receipt Date: 20051212
  Transmission Date: 20060501
  Serious: Yes (Hospitalization)
  Sender: FDA-Public Use
  Company Number: SE-JNJFOC-20051204644

PATIENT
  Age: 58 Year
  Sex: Female

DRUGS (5)
  1. ACETAMINOPHEN [Suspect]
  2. ACETAMINOPHEN [Suspect]
     Indication: DRUG USE FOR UNKNOWN INDICATION
     Dosage: 1-1.5G/DAY
  3. OXAZEPAM [Suspect]
     Indication: DRUG USE FOR UNKNOWN INDICATION
  4. LORAZEPAM [Suspect]
     Indication: DRUG USE FOR UNKNOWN INDICATION
  5. WINE [Suspect]
     Indication: DRUG USE FOR UNKNOWN INDICATION
     Dosage: 1 BOTTLE DAILY
     Route: 048

REACTIONS (1)
  - HEPATIC NECROSIS [None]
